FAERS Safety Report 12382855 (Version 1)
Quarter: 2016Q2

REPORT INFORMATION
  Report Type: Report from Study
  Country: AU (occurrence: AU)
  Receive Date: 20160518
  Receipt Date: 20160518
  Transmission Date: 20160815
  Serious: Yes (Other)
  Sender: FDA-Public Use
  Company Number: AU-GILEAD-2016-0213239

PATIENT
  Age: 57 Year
  Sex: Male

DRUGS (10)
  1. 3TC [Concomitant]
     Active Substance: LAMIVUDINE
  2. TENOFOVIR DISOPROXIL FUMARATE. [Suspect]
     Active Substance: TENOFOVIR DISOPROXIL FUMARATE
     Dosage: UNK
     Route: 065
     Dates: start: 201409
  3. TENOFOVIR DISOPROXIL FUMARATE. [Suspect]
     Active Substance: TENOFOVIR DISOPROXIL FUMARATE
     Indication: HIV INFECTION
     Dosage: UNK
     Route: 065
     Dates: start: 200112, end: 200205
  4. RALTEGRAVIR. [Concomitant]
     Active Substance: RALTEGRAVIR
  5. ETRAVIRINE [Concomitant]
     Active Substance: ETRAVIRINE
  6. LOPINAVIR [Concomitant]
     Active Substance: LOPINAVIR
  7. DDI [Concomitant]
     Active Substance: DIDANOSINE
  8. RITONAVIR. [Concomitant]
     Active Substance: RITONAVIR
  9. ABACAVIR. [Concomitant]
     Active Substance: ABACAVIR
  10. DARUNAVIR [Concomitant]
     Active Substance: DARUNAVIR

REACTIONS (1)
  - Chronic kidney disease [Unknown]
